FAERS Safety Report 14676414 (Version 1)
Quarter: 2018Q1

REPORT INFORMATION
  Report Type: Spontaneous
  Country: CA (occurrence: CA)
  Receive Date: 20180323
  Receipt Date: 20180323
  Transmission Date: 20180509
  Serious: Yes (Other)
  Sender: FDA-Public Use
  Company Number: CA-TEVA-2018-CA-873776

PATIENT
  Age: 85 Year
  Sex: Female

DRUGS (1)
  1. ACT DILTIAZEM CD [Suspect]
     Active Substance: DILTIAZEM
     Dosage: 1 DOSAGE FORMS DAILY;
     Route: 048

REACTIONS (5)
  - Hip fracture [Recovered/Resolved]
  - Feeling abnormal [Recovered/Resolved]
  - Fall [Recovered/Resolved]
  - Heart rate decreased [Recovered/Resolved]
  - Sudden onset of sleep [Recovered/Resolved]
